FAERS Safety Report 8123204-3 (Version None)
Quarter: 2012Q1

REPORT INFORMATION
  Report Type: 
  Country: None (occurrence: None)
  Receive Date: 20120208
  Receipt Date: 20120201
  Transmission Date: 20120608
  Serious: Yes (Hospitalization, Other)
  Sender: FDA-Public Use
  Company Number: PHHY2012GB008592

PATIENT
  Age: 19 Year
  Sex: Male

DRUGS (3)
  1. TOPIRAMATE [Concomitant]
     Indication: EPILEPSY
     Dosage: 300 MG, UNK
     Route: 048
     Dates: start: 20100402
  2. LEVETIRACETAM [Suspect]
     Indication: EPILEPSY
     Dosage: 2000 MG, UNK
     Route: 048
     Dates: start: 20091019
  3. LAMOTRIGINE [Concomitant]
     Indication: EPILEPSY
     Dosage: 1200 MG, UNK
     Route: 048

REACTIONS (3)
  - MENISCUS LESION [None]
  - ACCIDENT [None]
  - LIGAMENT RUPTURE [None]
